FAERS Safety Report 9469686 (Version 2)
Quarter: 2013Q3

REPORT INFORMATION
  Report Type: Report from Study
  Country: IN (occurrence: IN)
  Receive Date: 20130822
  Receipt Date: 20130917
  Transmission Date: 20140515
  Serious: Yes (Hospitalization)
  Sender: FDA-Public Use
  Company Number: PHHY2013IN089419

PATIENT
  Age: 45 Year
  Sex: Female

DRUGS (57)
  1. SIMULECT [Suspect]
     Indication: RENAL TRANSPLANT
     Dosage: 20 MG, UNK
     Route: 042
  2. HEPARIN [Concomitant]
     Dosage: 5 ML, UNK
  3. ALBUMIN [Concomitant]
     Dosage: UNK UKN, UNK
     Route: 042
  4. RPO [Concomitant]
     Dosage: 2000 UKN, UNK
  5. SANDOCAL                           /01767901/ [Concomitant]
     Dosage: 500 UKN, UNK
  6. STARPRESS XL [Concomitant]
     Dosage: 25 UKN, UNK
  7. RENODAPT [Concomitant]
     Dosage: 500 UKN, UNK
  8. AVIL [Concomitant]
     Dosage: UNK UKN, UNK
  9. HYDROCORT [Concomitant]
     Dosage: 100 MG, UNK
  10. DEXONA [Concomitant]
     Dosage: UNK UKN, UNK
  11. SOLU MEDROL [Concomitant]
     Dosage: 500 MG, UNK
  12. SODIUM CHLORIDE [Concomitant]
     Dosage: 500 ML,I/F
  13. SODIUM CHLORIDE [Concomitant]
     Dosage: 100 ML, I/F
  14. SODIUM CHLORIDE + DEXTROSE [Concomitant]
     Dosage: 500 ML, I/F
  15. SODIUM CHLORIDE + DEXTROSE [Concomitant]
     Dosage: 500 ML, UNK
  16. ACILOC-RD                          /07255901/ [Concomitant]
     Dosage: 2 ML, UNK
  17. URGENDOL [Concomitant]
     Dosage: 1 ML, UNK
  18. PANTOSEC [Concomitant]
     Dosage: UNK UKN, UNK
     Route: 042
  19. VOVERAN [Concomitant]
     Dosage: UNK UKN, UNK
  20. PHENERGAN                          /00404701/ [Concomitant]
     Dosage: UNK UKN, UNK
  21. NIG [Concomitant]
     Dosage: UNK UKN, UNK
  22. DOPAPLUS [Concomitant]
     Dosage: UNK UKN, UNK
  23. LASIX [Concomitant]
     Dosage: UNK UKN, UNK
  24. BUSCOPHEN [Concomitant]
     Dosage: UNK UKN, UNK
  25. DEXTROSE [Concomitant]
     Dosage: UNK UKN, UNK
     Route: 042
  26. SENSORCAINE [Concomitant]
     Dosage: 20 ML, UNK
  27. DEPIN [Concomitant]
     Dosage: 5 UKN, UNK
  28. ANXINIL//ALPRAZOLAM [Concomitant]
     Dosage: 0.25 UKN, UNK
  29. NICARDIA [Concomitant]
     Dosage: 20 MG, UNK
  30. PERINORM [Concomitant]
     Dosage: UNK UKN, UNK
  31. EMBETA [Concomitant]
     Dosage: 50 UKN, UNK
  32. KAPILIN//MENADIOL DIACETATE [Concomitant]
     Dosage: UNK UKN, UNK
  33. DULCOLAX [Concomitant]
     Dosage: UNK UKN, UNK
  34. BUTRUM [Concomitant]
     Dosage: UNK UKN, UNK
  35. PYROLATE [Concomitant]
     Dosage: UNK UKN, UNK
  36. TROPINE [Concomitant]
     Dosage: UNK UKN, UNK
  37. PROFOL [Concomitant]
     Dosage: UNK UKN, UNK
  38. MYOSTIGMIN [Concomitant]
     Dosage: UNK UKN, UNK
  39. RINGER LACTATE                     /01126301/ [Concomitant]
     Dosage: 500 ML, UNK
  40. MANNITOL [Concomitant]
     Dosage: UNK UKN, UNK
  41. AMIKACIN [Concomitant]
     Dosage: 500 MG, UNK
  42. MEZOLAM//MIDAZOLAM HYDROCHLORIDE [Concomitant]
     Dosage: UNK UKN, UNK
  43. CALAPTIN [Concomitant]
     Dosage: 120 UKN, UNK
  44. BETADIN [Concomitant]
     Dosage: 500 ML, UNK
  45. REVAC-B [Concomitant]
     Dosage: UNK UKN, UNK
  46. ANXIT//ALPRAZOLAM [Concomitant]
     Dosage: 0.25 UG, UNK
  47. DOMSTAL [Concomitant]
     Dosage: UNK UKN, TID
  48. PRAZOPRESS//PRAZOSIN HYDROCHLORIDE [Concomitant]
     Dosage: 5 MG, ONCE/SINGLE
  49. STAFCURE [Concomitant]
     Dosage: 500 MG, BID
  50. OMNACORTIL//PREDNISOLONE [Concomitant]
     Dosage: 5 MG, ONCE/SINGLE
  51. ACILOC (CIMETIDINE) [Concomitant]
     Dosage: 300 MG, ONCE/SINGLE
  52. DOLO                               /07386201/ [Concomitant]
  53. METALOC//OMEPRAZOLE [Concomitant]
     Dosage: 25 MG, BID
  54. CANDID//CLOTRIMAZOLE [Concomitant]
     Dosage: UNK UKN, TID
  55. LISITRIL [Concomitant]
     Dosage: UNK UKN, TID
  56. MYCOPHENOLATE MOFETIL [Concomitant]
     Indication: IMMUNOSUPPRESSION
     Dosage: UNK UKN, UNK
  57. PREDNISOLON [Concomitant]
     Indication: IMMUNOSUPPRESSION
     Dosage: UNK UKN, UNK

REACTIONS (8)
  - Renal impairment [Unknown]
  - Urine flow decreased [Unknown]
  - Ascites [Unknown]
  - Anaemia [Unknown]
  - Kidney transplant rejection [Unknown]
  - Renal cortical necrosis [Unknown]
  - Platelet count decreased [Unknown]
  - Hyperglycaemia [Unknown]
